FAERS Safety Report 10063042 (Version 1)
Quarter: 2014Q2

REPORT INFORMATION
  Report Type: Spontaneous
  Country: DE (occurrence: DE)
  Receive Date: 20140407
  Receipt Date: 20140407
  Transmission Date: 20141212
  Serious: Yes (Other)
  Sender: FDA-Public Use
  Company Number: DE-TEVA-473422GER

PATIENT
  Age: 88 Year
  Sex: Female
  Weight: 55 kg

DRUGS (6)
  1. OLANZAPIN [Suspect]
     Indication: INCREASED APPETITE
     Route: 048
     Dates: start: 20140218, end: 20140312
  2. PROMETHAZIN [Concomitant]
     Route: 048
     Dates: start: 201307, end: 20140312
  3. CITALOPRAM [Concomitant]
     Indication: DEPRESSION
     Route: 048
     Dates: start: 2011
  4. DESLORADERM [Concomitant]
     Indication: URTICARIA
     Route: 048
  5. EUTHYROX [Concomitant]
     Indication: HYPOTHYROIDISM
     Route: 048
     Dates: start: 2011
  6. LACTULOSE [Concomitant]
     Indication: CONSTIPATION
     Route: 048

REACTIONS (3)
  - Immobile [Recovering/Resolving]
  - Parkinsonism [Recovering/Resolving]
  - Decreased appetite [Recovering/Resolving]
